FAERS Safety Report 19840552 (Version 2)
Quarter: 2021Q4

REPORT INFORMATION
  Report Type: Spontaneous
  Country: PT (occurrence: PT)
  Receive Date: 20210915
  Receipt Date: 20211012
  Transmission Date: 20220303
  Serious: Yes (Other)
  Sender: FDA-Public Use
  Company Number: PT-AKCEA THERAPEUTICS, INC.-2021IS001566

PATIENT
  Age: 47 Year
  Sex: Male
  Weight: 73.18 kg

DRUGS (12)
  1. TEGSEDI [Suspect]
     Active Substance: INOTERSEN SODIUM
     Indication: Hereditary neuropathic amyloidosis
     Route: 065
     Dates: start: 20210316, end: 20210715
  2. DEVICE [Suspect]
     Active Substance: DEVICE
  3. TAFAMIDIS MEGLUMINE [Concomitant]
     Active Substance: TAFAMIDIS MEGLUMINE
     Route: 065
  4. ESOMEPRAZOLE. [Concomitant]
     Active Substance: ESOMEPRAZOLE MAGNESIUM
     Route: 065
  5. BISOPROLOL FUMARATE [Concomitant]
     Active Substance: BISOPROLOL FUMARATE
     Route: 065
  6. PROPAFENONE [Concomitant]
     Active Substance: PROPAFENONE
     Route: 065
  7. DAGRAVIT /01709701/ [Concomitant]
     Route: 065
  8. MOTILIUM [Concomitant]
     Active Substance: DOMPERIDONE
     Route: 065
  9. PANKREOFLAT /00290501/ [Concomitant]
     Route: 065
  10. ACETAMINOPHEN [Concomitant]
     Active Substance: ACETAMINOPHEN
     Route: 065
  11. NEXIUM [Concomitant]
     Active Substance: ESOMEPRAZOLE MAGNESIUM
     Route: 065
  12. ACETAMINOPHEN [Concomitant]
     Active Substance: ACETAMINOPHEN
     Route: 065

REACTIONS (42)
  - Proteinuria [Not Recovered/Not Resolved]
  - Nausea [Recovered/Resolved]
  - Vomiting [Recovered/Resolved]
  - Oedema [Recovered/Resolved]
  - Blood creatinine increased [Not Recovered/Not Resolved]
  - Malaise [Recovered/Resolved]
  - Blood albumin decreased [Recovered/Resolved]
  - Urinary sediment present [Unknown]
  - Leukocyturia [Recovered/Resolved]
  - Urine protein/creatinine ratio increased [Unknown]
  - Nephrotic syndrome [Unknown]
  - Anti-neutrophil cytoplasmic antibody positive vasculitis [Unknown]
  - Glomerulonephritis [Unknown]
  - Tubulointerstitial nephritis [Unknown]
  - Glomerular filtration rate decreased [Unknown]
  - Urine albumin/creatinine ratio increased [Unknown]
  - Haematuria [Unknown]
  - Fatigue [Unknown]
  - Urine abnormality [Unknown]
  - Decreased appetite [Unknown]
  - Urine calcium increased [Unknown]
  - Albuminuria [Unknown]
  - Eosinophil count increased [Unknown]
  - Lymphocyte count increased [Unknown]
  - Complement factor C3 decreased [Unknown]
  - Pyuria [Unknown]
  - Red blood cells urine positive [Unknown]
  - Faeces soft [Unknown]
  - Lip oedema [Unknown]
  - Feeling abnormal [Unknown]
  - Red blood cell count decreased [Unknown]
  - Red cell distribution width increased [Unknown]
  - White blood cell count increased [Unknown]
  - Neutrophil count increased [Unknown]
  - Blood urea increased [Unknown]
  - C-reactive protein increased [Unknown]
  - Periorbital oedema [Unknown]
  - Platelet count decreased [Recovered/Resolved]
  - Alanine aminotransferase increased [Recovered/Resolved]
  - Haemoglobin decreased [Recovered/Resolved]
  - Haematocrit decreased [Recovered/Resolved]
  - Monocyte count increased [Recovered/Resolved]

NARRATIVE: CASE EVENT DATE: 20210608
